FAERS Safety Report 9387947 (Version 2)
Quarter: 2013Q3

REPORT INFORMATION
  Report Type: Report from Study
  Country: DE (occurrence: DE)
  Receive Date: 20130708
  Receipt Date: 20130726
  Transmission Date: 20140515
  Serious: Yes (Hospitalization)
  Sender: FDA-Public Use
  Company Number: DE-GENZYME-CAMP-1003007

PATIENT
  Age: 31 Year
  Sex: Female
  Weight: 58 kg

DRUGS (6)
  1. ALEMTUZUMAB [Suspect]
     Indication: MULTIPLE SCLEROSIS
     Dosage: 12 MG, QD
     Route: 042
     Dates: start: 20100517, end: 20100519
  2. ALEMTUZUMAB [Suspect]
     Dosage: 12 MG, QD
     Route: 042
     Dates: start: 20090518, end: 20090522
  3. YASMIN [Concomitant]
     Indication: ORAL CONTRACEPTION
     Dosage: 3.03 MG, QD
     Route: 048
     Dates: start: 2007
  4. L-THYROXIN [Concomitant]
     Indication: HYPOTHYROIDISM
     Dosage: 125 MCG, QD
     Route: 048
     Dates: start: 20130629
  5. L-THYROXIN [Concomitant]
     Dosage: 125 MCG, QD
     Route: 048
     Dates: start: 20130415, end: 20130628
  6. MINOCYCLIN [Concomitant]
     Indication: RASH
     Dosage: 50 MG, QD
     Route: 048
     Dates: start: 20130508, end: 20130702

REACTIONS (1)
  - Endocrine ophthalmopathy [Recovered/Resolved with Sequelae]
